FAERS Safety Report 18630735 (Version 1)
Quarter: 2020Q4

REPORT INFORMATION
  Report Type: Spontaneous
  Country: US (occurrence: US)
  Receive Date: 20201218
  Receipt Date: 20201218
  Transmission Date: 20210114
  Serious: No
  Sender: FDA-Public Use
  Company Number: US-SUN PHARMACEUTICAL INDUSTRIES LTD-2020R1-245845

PATIENT
  Sex: Male
  Weight: 76.2 kg

DRUGS (1)
  1. ATORVASTATIN [Suspect]
     Active Substance: ATORVASTATIN
     Indication: PRODUCT USED FOR UNKNOWN INDICATION
     Dosage: 160 MILLIGRAM, QD
     Route: 065
     Dates: end: 20200410

REACTIONS (4)
  - Muscular weakness [Not Recovered/Not Resolved]
  - Incorrect dosage administered [Unknown]
  - Treatment noncompliance [Unknown]
  - Fatigue [Not Recovered/Not Resolved]
